FAERS Safety Report 10958693 (Version 1)
Quarter: 2015Q1

REPORT INFORMATION
  Report Type: Report from Study
  Country: NZ (occurrence: NZ)
  Receive Date: 20150326
  Receipt Date: 20150326
  Transmission Date: 20150721
  Serious: Yes (Hospitalization)
  Sender: FDA-Public Use
  Company Number: NZ-ABBVIE-15P-118-1363811-00

PATIENT
  Age: 53 Year
  Sex: Male

DRUGS (71)
  1. PREDNISONE. [Concomitant]
     Active Substance: PREDNISONE
     Indication: CROHN^S DISEASE
  2. PREDNISONE. [Concomitant]
     Active Substance: PREDNISONE
     Indication: LOWER RESPIRATORY TRACT INFECTION
     Dates: start: 20091027
  3. PREDNISONE. [Concomitant]
     Active Substance: PREDNISONE
     Dates: start: 20131023, end: 20131023
  4. GABAPENTIN. [Concomitant]
     Active Substance: GABAPENTIN
     Indication: ABDOMINAL PAIN
     Dosage: 300-900 MG TID
     Dates: start: 20091027
  5. MORPHINE [Concomitant]
     Active Substance: MORPHINE
     Dosage: 10-20MG PRN EVERY 30 MIN
     Dates: start: 20091030
  6. IRON [Concomitant]
     Active Substance: IRON
     Indication: IRON DEFICIENCY
  7. CEFUROXIME. [Concomitant]
     Active Substance: CEFUROXIME
     Indication: LOWER RESPIRATORY TRACT INFECTION
     Dates: start: 20101219, end: 20101220
  8. CODEINE PHOSPHATE [Concomitant]
     Active Substance: CODEINE PHOSPHATE
     Indication: PAIN
     Dosage: 30-60MG Q4-6H PRN
     Dates: start: 20120126
  9. GENTAMYCIN [Concomitant]
     Active Substance: GENTAMICIN
     Indication: BREAST CELLULITIS
     Dosage: STAT
     Dates: start: 20131101, end: 20131101
  10. CYCLIZINE [Concomitant]
     Active Substance: CYCLIZINE
     Indication: VOMITING
     Dosage: STAT
     Dates: start: 20131120, end: 20131120
  11. PREDNISONE. [Concomitant]
     Active Substance: PREDNISONE
     Dates: start: 20100128, end: 20100429
  12. PREDNISONE. [Concomitant]
     Active Substance: PREDNISONE
     Dates: start: 20110909, end: 20110912
  13. PREDNISONE. [Concomitant]
     Active Substance: PREDNISONE
     Dosage: TITRATE DOSE 5MG EVERY 5 DAYS TO 20MG
     Dates: start: 20110912, end: 20111012
  14. PREDNISONE. [Concomitant]
     Active Substance: PREDNISONE
     Dates: start: 20130907, end: 20130910
  15. BUDESONIDE. [Concomitant]
     Active Substance: BUDESONIDE
     Indication: CROHN^S DISEASE
  16. METHADONE [Concomitant]
     Active Substance: METHADONE HYDROCHLORIDE
     Indication: ABDOMINAL PAIN
     Dosage: 5-20MG TID
     Dates: start: 20091027
  17. MORPHINE SULFATE. [Concomitant]
     Active Substance: MORPHINE SULFATE
     Indication: ABDOMINAL PAIN
  18. CODEINE PHOSPHATE [Concomitant]
     Active Substance: CODEINE PHOSPHATE
     Dosage: 30-60 MG TID
     Dates: start: 20131119, end: 20131122
  19. SEVREDOL [Concomitant]
     Active Substance: MORPHINE
     Indication: BREAST PAIN
     Dates: start: 20131023
  20. HUMIRA [Suspect]
     Active Substance: ADALIMUMAB
     Indication: CROHN^S DISEASE
     Dosage: BASELINE (1/2 OF 4TH SYRINGE WASTED)
     Route: 058
     Dates: start: 20091009, end: 20091009
  21. PREDNISONE. [Concomitant]
     Active Substance: PREDNISONE
     Dosage: TAPER DOWN 2.5MG WEEKLY
     Dates: start: 20111012, end: 20120208
  22. PREDNISONE. [Concomitant]
     Active Substance: PREDNISONE
     Dates: start: 20130621, end: 20130704
  23. PREDNISONE. [Concomitant]
     Active Substance: PREDNISONE
     Dates: start: 20131021, end: 20131031
  24. METHADONE [Concomitant]
     Active Substance: METHADONE HYDROCHLORIDE
     Indication: PAIN
     Dosage: 5-15MG TID
     Dates: start: 20101224, end: 20111012
  25. MORPHINE [Concomitant]
     Active Substance: MORPHINE
     Dosage: 2MG/2ML IN PCA PUMP
     Dates: start: 20091027, end: 20091030
  26. MORPHINE [Concomitant]
     Active Substance: MORPHINE
     Indication: ABDOMINAL PAIN
     Dosage: 15-20MG TID
     Dates: start: 20091027, end: 20091027
  27. ENSURE [Concomitant]
     Active Substance: AMINO ACIDS\DEXTROSE\ELECTROLYTES NOS\SOYBEAN OIL\VITAMINS
     Indication: NUTRITIONAL SUPPLEMENTATION
     Dates: start: 20091027
  28. LACTULOSE. [Concomitant]
     Active Substance: LACTULOSE
     Indication: CONSTIPATION PROPHYLAXIS
     Dosage: 20-40MG BID PRN
     Dates: start: 20091029
  29. HYDROCORTISONE. [Concomitant]
     Active Substance: HYDROCORTISONE
     Dosage: STAT
     Dates: start: 20131020, end: 20131020
  30. METOCLOPRAMIDE HYDROCHLORIDE. [Concomitant]
     Active Substance: METOCLOPRAMIDE HYDROCHLORIDE
     Indication: NAUSEA
     Dosage: Q8H TO QID PRN
     Dates: start: 20110701
  31. CODEINE PHOSPHATE [Concomitant]
     Active Substance: CODEINE PHOSPHATE
     Dosage: 30-60 MG QID
     Dates: start: 20121007, end: 20121015
  32. CYCLIZINE [Concomitant]
     Active Substance: CYCLIZINE
     Indication: NAUSEA
     Dosage: 25-50MG PRN
     Dates: start: 20131107, end: 20131113
  33. HUMIRA [Suspect]
     Active Substance: ADALIMUMAB
     Dosage: WEEK 2
     Route: 058
  34. PREDNISONE. [Concomitant]
     Active Substance: PREDNISONE
     Indication: INFECTIVE EXACERBATION OF CHRONIC OBSTRUCTIVE AIRWAYS DISEASE
     Dates: start: 20101219, end: 20101224
  35. PREDNISONE. [Concomitant]
     Active Substance: PREDNISONE
     Dates: start: 20101224, end: 20110128
  36. PREDNISONE. [Concomitant]
     Active Substance: PREDNISONE
     Dates: start: 20100429, end: 20110413
  37. PREDNISONE. [Concomitant]
     Active Substance: PREDNISONE
     Dates: start: 20130224, end: 20130910
  38. PREDNISONE. [Concomitant]
     Active Substance: PREDNISONE
     Dates: start: 20130921, end: 20130924
  39. PREDNISONE. [Concomitant]
     Active Substance: PREDNISONE
     Dates: start: 20131101
  40. 6-MP [Concomitant]
     Active Substance: MERCAPTOPURINE
     Indication: CROHN^S DISEASE
     Dates: end: 200807
  41. PARACETAMOL [Concomitant]
     Active Substance: ACETAMINOPHEN
     Indication: ABDOMINAL PAIN
     Dosage: QID PRN
     Dates: start: 20091027
  42. CHOLECALCIFEROL [Concomitant]
     Active Substance: CHOLECALCIFEROL
     Indication: BONE DENSITY ABNORMAL
     Dates: start: 20101112
  43. GENTAMYCIN [Concomitant]
     Active Substance: GENTAMICIN
     Dates: start: 20131102, end: 20131102
  44. PREDNISONE. [Concomitant]
     Active Substance: PREDNISONE
     Indication: ERYTHEMA NODOSUM
     Dates: start: 20100127, end: 20101219
  45. PREDNISONE. [Concomitant]
     Active Substance: PREDNISONE
     Dosage: REDUCE 1MG QMONTH
     Dates: start: 20120209, end: 20121013
  46. PREDNISONE. [Concomitant]
     Active Substance: PREDNISONE
     Dates: start: 20130905, end: 20130910
  47. METHADONE [Concomitant]
     Active Substance: METHADONE HYDROCHLORIDE
     Indication: ABDOMINAL PAIN
     Dates: start: 20101220, end: 20101223
  48. METHADONE [Concomitant]
     Active Substance: METHADONE HYDROCHLORIDE
     Dosage: 5-10 MG TID
     Dates: start: 20111013
  49. ENTOCORT [Concomitant]
     Active Substance: BUDESONIDE
     Indication: CROHN^S DISEASE
     Dates: start: 20091027, end: 20101028
  50. HYDROCORTISONE. [Concomitant]
     Active Substance: HYDROCORTISONE
     Indication: CROHN^S DISEASE
     Dosage: STAT
     Dates: start: 20110810, end: 20110810
  51. NICOTINE. [Concomitant]
     Active Substance: NICOTINE
     Indication: TOBACCO WITHDRAWAL SYMPTOMS
     Dates: start: 20111011
  52. FLIXOTIDE [Concomitant]
     Active Substance: FLUTICASONE PROPIONATE
     Indication: RESPIRATORY TRACT OEDEMA
     Dosage: 50-100 MCG BID
     Dates: start: 20101223
  53. PREDNISONE. [Concomitant]
     Active Substance: PREDNISONE
     Dates: start: 20110413, end: 20110427
  54. PREDNISONE. [Concomitant]
     Active Substance: PREDNISONE
     Dates: start: 20121014, end: 20121218
  55. PREDNISONE. [Concomitant]
     Active Substance: PREDNISONE
     Dates: start: 20121219, end: 20130223
  56. PREDNISONE. [Concomitant]
     Active Substance: PREDNISONE
     Dates: start: 20130618, end: 20130620
  57. PREDNISONE. [Concomitant]
     Active Substance: PREDNISONE
     Dosage: 10-20 MG
     Dates: start: 20130705, end: 20130829
  58. MORPHINE [Concomitant]
     Active Substance: MORPHINE
     Dosage: IV TITRATION 2MG OVER 5 HRS (TOTAL 15 DOSE)
     Route: 042
     Dates: start: 20091027, end: 20091027
  59. ENTOCORT [Concomitant]
     Active Substance: BUDESONIDE
     Dates: start: 20100128, end: 20110429
  60. CATAPRES [Concomitant]
     Active Substance: CLONIDINE HYDROCHLORIDE
     Indication: HYPERTENSION
     Route: 061
     Dates: start: 20091027
  61. IRON [Concomitant]
     Active Substance: IRON
     Indication: ANAEMIA
     Dosage: 1400MG=4452MG POLYMALTOSE GIVE IN 500ML NS
     Dates: start: 20091101, end: 20091101
  62. NICOTINE. [Concomitant]
     Active Substance: NICOTINE
     Indication: PROPHYLAXIS
     Dates: start: 20101219, end: 20101223
  63. MORPHINE SULFATE. [Concomitant]
     Active Substance: MORPHINE SULFATE
     Indication: MUSCULOSKELETAL CHEST PAIN
     Dosage: QID PRN
     Dates: start: 20110705
  64. LAXOL [Concomitant]
     Active Substance: CASTOR OIL
     Indication: CONSTIPATION PROPHYLAXIS
     Dates: start: 20130922
  65. HUMIRA [Suspect]
     Active Substance: ADALIMUMAB
     Route: 058
  66. PREDNISONE. [Concomitant]
     Active Substance: PREDNISONE
     Indication: CROHN^S DISEASE
     Dates: start: 20091102
  67. PREDNISONE. [Concomitant]
     Active Substance: PREDNISONE
     Dates: start: 20110427, end: 20110701
  68. PREDNISONE. [Concomitant]
     Active Substance: PREDNISONE
     Dosage: WEANED 5MG EVERY 3 DAYS TO 10MG
     Dates: start: 20110701, end: 20110729
  69. PREDNISONE. [Concomitant]
     Active Substance: PREDNISONE
     Dosage: REDUCING BY 1MG MONTHLY
     Dates: start: 20120209, end: 20121013
  70. PREDNISONE. [Concomitant]
     Active Substance: PREDNISONE
     Dates: start: 20130830, end: 20130906
  71. PARACETAMOL [Concomitant]
     Active Substance: ACETAMINOPHEN
     Indication: PAIN
     Dosage: QID PRN
     Dates: start: 20101219, end: 20101224

REACTIONS (2)
  - Infective exacerbation of chronic obstructive airways disease [Recovered/Resolved]
  - Emphysema [Recovered/Resolved]

NARRATIVE: CASE EVENT DATE: 20141101
